FAERS Safety Report 9962400 (Version 1)
Quarter: 2014Q1

REPORT INFORMATION
  Report Type: Report from Study
  Country: US (occurrence: US)
  Receive Date: 20140305
  Receipt Date: 20140305
  Transmission Date: 20141002
  Serious: No
  Sender: FDA-Public Use
  Company Number: US-ABBVIE-13P-163-1116473-00

PATIENT
  Age: 48 Year
  Sex: Female

DRUGS (7)
  1. HUMIRA [Suspect]
     Indication: ANKYLOSING SPONDYLITIS
     Dates: start: 20130320
  2. INDOMETHACIN [Concomitant]
     Indication: ANTIINFLAMMATORY THERAPY
  3. SAVELLA [Concomitant]
     Indication: FIBROMYALGIA
     Dosage: ONCE TO TWICE A DAY
  4. VYVANSE [Concomitant]
     Indication: ATTENTION DEFICIT/HYPERACTIVITY DISORDER
  5. VITAMIN D [Concomitant]
     Indication: SUPPLEMENTATION THERAPY
     Dosage: SUPPLEMENT
  6. OTC EYE DROP [Concomitant]
     Indication: DRY EYE
  7. ZOLOFT [Concomitant]
     Indication: ANXIETY
     Dates: start: 20130604

REACTIONS (4)
  - Pain [Not Recovered/Not Resolved]
  - Rash papular [Not Recovered/Not Resolved]
  - Weight increased [Unknown]
  - Depressed mood [Unknown]
